FAERS Safety Report 5570963-X (Version None)
Quarter: 2007Q4

REPORT INFORMATION
  Report Type: 
  Country: None (occurrence: None)
  Receive Date: 20071221
  Receipt Date: 20071212
  Transmission Date: 20080405
  Serious: Yes (Death, Hospitalization)
  Sender: FDA-Public Use
  Company Number: JP-AMGEN-US254983

PATIENT
  Sex: Male
  Weight: 72 kg

DRUGS (10)
  1. ENBREL [Suspect]
     Indication: RHEUMATOID ARTHRITIS
     Route: 058
     Dates: start: 20070205, end: 20070618
  2. ENBREL [Suspect]
     Route: 058
     Dates: start: 20070621, end: 20070809
  3. AZULFIDINE EN-TABS [Suspect]
  4. FOLIAMIN [Concomitant]
  5. PREDONINE [Concomitant]
     Indication: RHEUMATOID ARTHRITIS
  6. ISCOTIN [Concomitant]
  7. PYDOXAL [Concomitant]
  8. OPALMON [Concomitant]
  9. METHOTREXATE [Concomitant]
     Indication: RHEUMATOID ARTHRITIS
     Dosage: UNKNOWN
     Route: 048
     Dates: start: 20070119, end: 20070318
  10. SELBEX [Concomitant]

REACTIONS (2)
  - ECZEMA [None]
  - PERITONEAL PERFORATION [None]
